FAERS Safety Report 11566385 (Version 1)
Quarter: 2015Q3

REPORT INFORMATION
  Report Type: Spontaneous
  Country: US (occurrence: US)
  Receive Date: 20150916
  Receipt Date: 20150916
  Transmission Date: 20151125
  Serious: No
  Sender: FDA-Public Use
  Company Number: US-ELI_LILLY_AND_COMPANY-US200906001245

PATIENT
  Sex: Female

DRUGS (3)
  1. AVONEX /05983401/ [Concomitant]
  2. ANALGESICS [Concomitant]
     Active Substance: UNSPECIFIED INGREDIENT
     Indication: PAIN
  3. FORTEO [Suspect]
     Active Substance: TERIPARATIDE
     Dates: start: 200903

REACTIONS (1)
  - Skin ulcer [Unknown]
